FAERS Safety Report 18073322 (Version 1)
Quarter: 2020Q3

REPORT INFORMATION
  Report Type: Other
  Country: AT (occurrence: AT)
  Receive Date: 20200727
  Receipt Date: 20200727
  Transmission Date: 20201103
  Serious: Yes (Other)
  Sender: FDA-Public Use
  Company Number: AT-ROCHE-2648820

PATIENT

DRUGS (26)
  1. PACLITAXEL. [Suspect]
     Active Substance: PACLITAXEL
     Indication: METASTASES TO CENTRAL NERVOUS SYSTEM
  2. LAPATINIB [Suspect]
     Active Substance: LAPATINIB
     Indication: NEOPLASM MALIGNANT
     Route: 065
  3. BEVACIZUMAB. [Suspect]
     Active Substance: BEVACIZUMAB
     Indication: NON-SMALL CELL LUNG CANCER
  4. IRINOTECAN [Suspect]
     Active Substance: IRINOTECAN
     Indication: NEOPLASM MALIGNANT
     Route: 065
  5. OXALIPLATIN. [Suspect]
     Active Substance: OXALIPLATIN
     Indication: METASTASES TO CENTRAL NERVOUS SYSTEM
  6. CARBOPLATIN. [Suspect]
     Active Substance: CARBOPLATIN
     Indication: NEOPLASM MALIGNANT
     Route: 065
  7. DOXORUBICIN [Suspect]
     Active Substance: DOXORUBICIN
     Indication: NEOPLASM MALIGNANT
     Route: 065
  8. LAPATINIB [Suspect]
     Active Substance: LAPATINIB
     Indication: METASTASES TO CENTRAL NERVOUS SYSTEM
  9. TRASTUZUMAB. [Suspect]
     Active Substance: TRASTUZUMAB
     Indication: METASTASES TO CENTRAL NERVOUS SYSTEM
     Route: 065
  10. TRASTUZUMAB. [Suspect]
     Active Substance: TRASTUZUMAB
     Indication: NEOPLASM MALIGNANT
  11. ANASTROZOLE. [Suspect]
     Active Substance: ANASTROZOLE
     Indication: NEOPLASM MALIGNANT
     Route: 065
  12. BEVACIZUMAB. [Suspect]
     Active Substance: BEVACIZUMAB
     Indication: BREAST CANCER
  13. OXALIPLATIN. [Suspect]
     Active Substance: OXALIPLATIN
     Indication: NEOPLASM MALIGNANT
     Route: 065
  14. PACLITAXEL. [Suspect]
     Active Substance: PACLITAXEL
     Indication: NEOPLASM MALIGNANT
     Route: 065
  15. ANASTROZOLE. [Suspect]
     Active Substance: ANASTROZOLE
     Indication: METASTASES TO CENTRAL NERVOUS SYSTEM
  16. 5?FLUOROURACIL [Suspect]
     Active Substance: FLUOROURACIL
     Indication: NEOPLASM MALIGNANT
     Route: 065
  17. GEFITINIB. [Suspect]
     Active Substance: GEFITINIB
     Indication: METASTASES TO CENTRAL NERVOUS SYSTEM
  18. IRINOTECAN [Suspect]
     Active Substance: IRINOTECAN
     Indication: METASTASES TO CENTRAL NERVOUS SYSTEM
  19. CARBOPLATIN. [Suspect]
     Active Substance: CARBOPLATIN
     Indication: METASTASES TO CENTRAL NERVOUS SYSTEM
  20. PEMETREXED. [Suspect]
     Active Substance: PEMETREXED
     Indication: NEOPLASM MALIGNANT
     Route: 065
  21. PEMETREXED. [Suspect]
     Active Substance: PEMETREXED
     Indication: METASTASES TO CENTRAL NERVOUS SYSTEM
  22. DOXORUBICIN [Suspect]
     Active Substance: DOXORUBICIN
     Indication: METASTASES TO CENTRAL NERVOUS SYSTEM
  23. BEVACIZUMAB. [Suspect]
     Active Substance: BEVACIZUMAB
     Indication: METASTASES TO CENTRAL NERVOUS SYSTEM
     Route: 065
  24. BEVACIZUMAB. [Suspect]
     Active Substance: BEVACIZUMAB
     Indication: COLORECTAL CANCER
  25. 5?FLUOROURACIL [Suspect]
     Active Substance: FLUOROURACIL
     Indication: METASTASES TO CENTRAL NERVOUS SYSTEM
  26. GEFITINIB. [Suspect]
     Active Substance: GEFITINIB
     Indication: NEOPLASM MALIGNANT
     Route: 065

REACTIONS (2)
  - Impaired healing [Unknown]
  - Intestinal fistula [Unknown]
